FAERS Safety Report 4998731-8 (Version None)
Quarter: 2006Q2

REPORT INFORMATION
  Report Type: 
  Country: None (occurrence: None)
  Receive Date: 20060508
  Receipt Date: 20060427
  Transmission Date: 20061013
  Serious: Yes (Life-Threatening)
  Sender: FDA-Public Use
  Company Number: HQWYE465322MAR06

PATIENT
  Age: 69 Year
  Sex: Female

DRUGS (10)
  1. MYLOTARG [Suspect]
     Indication: ACUTE MYELOID LEUKAEMIA
     Dosage: 9 MG/M^2 1X PER 1 DAY
     Route: 041
     Dates: start: 20051124, end: 20051124
  2. MYLOTARG [Suspect]
     Indication: ACUTE MYELOID LEUKAEMIA
     Dosage: 9 MG/M^2 1X PER 1 DAY
     Route: 041
     Dates: start: 20051208, end: 20051208
  3. FAMOTIDINE [Concomitant]
  4. PANTOSIN (PANTETHINE) [Concomitant]
  5. MAGNESIUM OXIDE (MAGNESIUM OXIDE) [Concomitant]
  6. LASIX [Concomitant]
  7. KYTRIL [Concomitant]
  8. LOXONIN (LOXOPROFEN SODIUM) [Concomitant]
  9. MUCOSTA (REBAMIPIDE) [Concomitant]
  10. FUNGUARD (MICAFUNGIN SODIUM) [Concomitant]

REACTIONS (3)
  - DISEASE PROGRESSION [None]
  - DISEASE RECURRENCE [None]
  - SEPSIS [None]
